FAERS Safety Report 13176901 (Version 3)
Quarter: 2017Q1

REPORT INFORMATION
  Report Type: Spontaneous
  Country: US (occurrence: US)
  Receive Date: 20170201
  Receipt Date: 20170207
  Transmission Date: 20170428
  Serious: No
  Sender: FDA-Public Use
  Company Number: US-PFIZER INC-2017040017

PATIENT
  Age: 16 Year
  Sex: Male
  Weight: 86.17 kg

DRUGS (1)
  1. EPIPEN [Suspect]
     Active Substance: EPINEPHRINE
     Dosage: UNK
     Dates: start: 20170104, end: 20170104

REACTIONS (4)
  - Injection site bruising [Unknown]
  - Accidental exposure to product [Recovered/Resolved]
  - Injection site pain [Unknown]
  - Expired product administered [Recovered/Resolved]

NARRATIVE: CASE EVENT DATE: 20170104
